FAERS Safety Report 6936670-3 (Version None)
Quarter: 2010Q3

REPORT INFORMATION
  Report Type: 
  Country: None (occurrence: None)
  Receive Date: 20100823
  Receipt Date: 20100812
  Transmission Date: 20110219
  Serious: Yes (Hospitalization)
  Sender: FDA-Public Use
  Company Number: US-ROCHE-722243

PATIENT
  Sex: Female

DRUGS (4)
  1. VALIUM [Suspect]
     Indication: PRODUCT USED FOR UNKNOWN INDICATION
     Route: 065
     Dates: end: 20100701
  2. KLONOPIN [Suspect]
     Indication: PRODUCT USED FOR UNKNOWN INDICATION
     Route: 065
     Dates: end: 20100701
  3. REBIF [Suspect]
     Indication: PRODUCT USED FOR UNKNOWN INDICATION
     Route: 058
     Dates: start: 20050418
  4. FENTANYL-75 [Suspect]
     Indication: PRODUCT USED FOR UNKNOWN INDICATION
     Dosage: FENTANYL PATCH
     Route: 065

REACTIONS (2)
  - LETHARGY [None]
  - UNRESPONSIVE TO STIMULI [None]
